FAERS Safety Report 8806189 (Version 1)
Quarter: 2012Q4

REPORT INFORMATION
  Report Type: Spontaneous
  Country: US (occurrence: None)
  Receive Date: 20120919
  Receipt Date: 20120919
  Transmission Date: 20130627
  Serious: Yes (Life-Threatening, Hospitalization)
  Sender: FDA-Public Use
  Company Number: None

PATIENT
  Age: 71 Year
  Sex: Female
  Weight: 53.52 kg

DRUGS (4)
  1. ALBUTEROL NEBULIZER [Suspect]
     Dates: start: 20120701, end: 20120726
  2. ALBUTEROL NEBULIZER [Suspect]
     Dates: start: 20120701, end: 20120726
  3. ALBUTEROL NEBULIZER [Suspect]
     Dates: start: 20120802, end: 20120806
  4. ALBUTEROL NEBULIZER [Suspect]
     Dates: start: 20120802, end: 20120806

REACTIONS (1)
  - Dysphagia [None]
